FAERS Safety Report 21570100 (Version 2)
Quarter: 2023Q1

REPORT INFORMATION
  Report Type: Spontaneous
  Country: US (occurrence: US)
  Receive Date: 20221109
  Receipt Date: 20230319
  Transmission Date: 20230418
  Serious: No
  Sender: FDA-Public Use
  Company Number: US-ORGANON-O2210USA001153

PATIENT
  Sex: Female

DRUGS (4)
  1. PREGNYL [Suspect]
     Active Substance: CHORIOGONADOTROPIN ALFA
     Indication: In vitro fertilisation
     Dosage: 5000 INTERNATIONAL UNIT ONCE
     Route: 058
     Dates: start: 20221012
  2. STERILE WATER [Suspect]
     Active Substance: WATER
     Indication: In vitro fertilisation
     Dosage: UNK
     Route: 058
     Dates: start: 20221012
  3. MENOPUR [Concomitant]
     Active Substance: FOLLITROPIN\LUTEINIZING HORMONE
  4. GONAL-F [Concomitant]
     Active Substance: FOLLITROPIN

REACTIONS (3)
  - Drug ineffective [Unknown]
  - Incorrect route of product administration [Unknown]
  - Product formulation issue [Unknown]

NARRATIVE: CASE EVENT DATE: 20221012
